FAERS Safety Report 16389630 (Version 1)
Quarter: 2019Q2

REPORT INFORMATION
  Report Type: Spontaneous
  Country: DE (occurrence: DE)
  Receive Date: 20190604
  Receipt Date: 20190604
  Transmission Date: 20190711
  Serious: Yes (Other)
  Sender: FDA-Public Use
  Company Number: DE-GUERBET-DE-20190060

PATIENT
  Sex: Male
  Weight: 105 kg

DRUGS (2)
  1. DOTAREM [Suspect]
     Active Substance: GADOTERATE MEGLUMINE
     Indication: NUCLEAR MAGNETIC RESONANCE IMAGING
     Route: 065
     Dates: start: 20171006, end: 20171006
  2. GADOVIST [Suspect]
     Active Substance: GADOBUTROL
     Indication: PRODUCT USED FOR UNKNOWN INDICATION
     Route: 065
     Dates: start: 20180123, end: 20180123

REACTIONS (8)
  - Asthma [Unknown]
  - Histamine intolerance [Unknown]
  - Myalgia [Unknown]
  - Skin burning sensation [Unknown]
  - Insomnia [Unknown]
  - Pain [Unknown]
  - Neuropathy peripheral [Unknown]
  - Headache [Unknown]
